FAERS Safety Report 12832645 (Version 1)
Quarter: 2016Q4

REPORT INFORMATION
  Report Type: Spontaneous
  Country: US (occurrence: US)
  Receive Date: 20161010
  Receipt Date: 20161010
  Transmission Date: 20170207
  Serious: Yes (Hospitalization)
  Sender: FDA-Public Use
  Company Number: US-PFM-US-2016-2004

PATIENT
  Age: 6 Month
  Sex: Female

DRUGS (1)
  1. HEMANGEOL [Suspect]
     Active Substance: PROPRANOLOL HYDROCHLORIDE
     Indication: HAEMANGIOMA
     Dosage: 0.9 ML, BID (2/DAY)
     Route: 048
     Dates: start: 20160223

REACTIONS (3)
  - Rhinorrhoea [Unknown]
  - Cough [Unknown]
  - Hypotension [None]

NARRATIVE: CASE EVENT DATE: 201606
